FAERS Safety Report 19884858 (Version 1)
Quarter: 2021Q3

REPORT INFORMATION
  Report Type: Spontaneous
  Country: US (occurrence: US)
  Receive Date: 20210924
  Receipt Date: 20210924
  Transmission Date: 20211014
  Serious: Yes (Death)
  Sender: FDA-Public Use
  Company Number: None

PATIENT
  Age: 68 Year
  Sex: Male

DRUGS (22)
  1. VITAMIN D [Concomitant]
     Active Substance: VITAMIN D NOS
  2. CAPECITABINE 500 MG [Suspect]
     Active Substance: CAPECITABINE
     Indication: BREAST CANCER
     Route: 048
     Dates: start: 20210908
  3. ALPRAZOLAM. [Concomitant]
     Active Substance: ALPRAZOLAM
  4. RED YEAST CAPSULE [Concomitant]
  5. LOSARTAN. [Concomitant]
     Active Substance: LOSARTAN
  6. ONDANSETRON [Concomitant]
     Active Substance: ONDANSETRON
  7. MIRALEX [Concomitant]
  8. PROBIOTIC [Concomitant]
     Active Substance: PROBIOTICS NOS
  9. VITAMIN B?COMPLEX [Concomitant]
     Active Substance: DEXPANTHENOL\NIACINAMIDE\PYRIDOXINE HYDROCHLORIDE\RIBOFLAVIN 5^-PHOSPHATE SODIUM\THIAMINE HYDROCHLORIDE
  10. BUSPIRONE [Concomitant]
     Active Substance: BUSPIRONE HYDROCHLORIDE
  11. HCTZ [Concomitant]
     Active Substance: HYDROCHLOROTHIAZIDE
  12. OLANZAPINE. [Concomitant]
     Active Substance: OLANZAPINE
  13. FASLODEX [Concomitant]
     Active Substance: FULVESTRANT
  14. GLUCOSAMINE CHONDROITIN MSM [Concomitant]
  15. LACTULOSE. [Concomitant]
     Active Substance: LACTULOSE
  16. FUROSEMIDE. [Concomitant]
     Active Substance: FUROSEMIDE
  17. MORPHINE SULFATE ER [Concomitant]
     Active Substance: MORPHINE SULFATE
  18. OXYCODONE [Concomitant]
     Active Substance: OXYCODONE
  19. SENNA [Concomitant]
     Active Substance: SENNA LEAF\SENNOSIDES\SENNOSIDES A AND B
  20. ASHWAGANDHA [Concomitant]
     Active Substance: HERBALS
  21. OMEPRAZOLE. [Concomitant]
     Active Substance: OMEPRAZOLE
  22. BUMETANIDE. [Concomitant]
     Active Substance: BUMETANIDE

REACTIONS (1)
  - Death [None]

NARRATIVE: CASE EVENT DATE: 20210922
